FAERS Safety Report 21264778 (Version 1)
Quarter: 2022Q3

REPORT INFORMATION
  Report Type: Spontaneous
  Country: US (occurrence: None)
  Receive Date: 20220827
  Receipt Date: 20220827
  Transmission Date: 20221027
  Serious: Yes (Hospitalization)
  Sender: FDA-Public Use
  Company Number: None

PATIENT
  Age: 67 Year
  Sex: Male
  Weight: 74 kg

DRUGS (1)
  1. GEMCITABINE [Suspect]
     Active Substance: GEMCITABINE
     Indication: Pancreatic carcinoma
     Dosage: FREQUENCY : ONCE;?
     Route: 042
     Dates: start: 20220624, end: 20220624

REACTIONS (3)
  - Colitis [None]
  - Diarrhoea [None]
  - Dehydration [None]

NARRATIVE: CASE EVENT DATE: 20220629
